FAERS Safety Report 20650168 (Version 2)
Quarter: 2022Q2

REPORT INFORMATION
  Report Type: Spontaneous
  Country: US (occurrence: US)
  Receive Date: 20220329
  Receipt Date: 20220609
  Transmission Date: 20220720
  Serious: No
  Sender: FDA-Public Use
  Company Number: US-AVEO ONCOLOGY-2021-AVEO-US003735

PATIENT

DRUGS (3)
  1. FOTIVDA [Suspect]
     Active Substance: TIVOZANIB HYDROCHLORIDE
     Indication: Renal cell carcinoma
     Dosage: 1.34 MG, DAILY ON DAYS 1-21 EVERY 28 DAYS
     Route: 048
     Dates: start: 20211216
  2. FLOVENT [Concomitant]
     Active Substance: FLUTICASONE PROPIONATE
  3. CODEINE SULFATE [Concomitant]
     Active Substance: CODEINE SULFATE

REACTIONS (6)
  - Fatigue [Unknown]
  - Cough [Unknown]
  - Dyspnoea [Unknown]
  - Pain [Unknown]
  - Thyroid hormones decreased [Unknown]
  - Disease progression [Unknown]

NARRATIVE: CASE EVENT DATE: 20220131
